FAERS Safety Report 14830985 (Version 6)
Quarter: 2018Q2

REPORT INFORMATION
  Report Type: Report from Study
  Country: FR (occurrence: FR)
  Receive Date: 20180430
  Receipt Date: 20180604
  Transmission Date: 20180711
  Serious: Yes (Death, Life-Threatening, Hospitalization, Other)
  Sender: FDA-Public Use
  Company Number: FR-SHIRE-FR201815259

PATIENT

DRUGS (4)
  1. VINCRISTINE [Suspect]
     Active Substance: VINCRISTINE
     Indication: ACUTE LYMPHOCYTIC LEUKAEMIA
     Dosage: 0.8 MG, 1X/DAY:QD
     Route: 042
     Dates: start: 20180319, end: 20180403
  2. PEGASPARGASE [Suspect]
     Active Substance: PEGASPARGASE
     Indication: ACUTE LYMPHOCYTIC LEUKAEMIA
     Dosage: 735 IU, 1X/DAY:QD
     Route: 042
     Dates: start: 20180323, end: 20180418
  3. DEXAMETHASONE. [Suspect]
     Active Substance: DEXAMETHASONE
     Indication: ACUTE LYMPHOCYTIC LEUKAEMIA
     Dosage: 3.5 MG, 1X/DAY:QD
     Route: 042
     Dates: start: 20180319, end: 20180409
  4. METHOTREXATE. [Suspect]
     Active Substance: METHOTREXATE
     Indication: ACUTE LYMPHOCYTIC LEUKAEMIA
     Dosage: 8 MG, 1X/DAY:QD
     Route: 037
     Dates: start: 20180312, end: 20180404

REACTIONS (3)
  - Febrile bone marrow aplasia [Fatal]
  - Pseudomonas infection [Fatal]
  - Sepsis [Fatal]

NARRATIVE: CASE EVENT DATE: 20180410
